FAERS Safety Report 4860014-4 (Version None)
Quarter: 2005Q4

REPORT INFORMATION
  Report Type: 
  Country: None (occurrence: None)
  Receive Date: 20051219
  Receipt Date: 20051209
  Transmission Date: 20060501
  Serious: Yes (Other)
  Sender: FDA-Public Use
  Company Number: US-JNJFOC-20050902808

PATIENT
  Sex: Male
  Weight: 95.26 kg

DRUGS (10)
  1. DURAGESIC-100 [Suspect]
     Route: 062
     Dates: start: 20010101
  2. DURAGESIC-100 [Suspect]
     Route: 062
     Dates: start: 20010101
  3. TENORMIN [Concomitant]
     Indication: HYPERTENSION
     Route: 048
  4. BUSPAR [Concomitant]
     Indication: ANXIETY
     Route: 048
  5. XANAX [Concomitant]
     Indication: ANXIETY
     Route: 048
  6. PERCOCET [Concomitant]
  7. PERCOCET [Concomitant]
  8. BACLOFEN [Concomitant]
  9. PHENERGAN [Concomitant]
  10. ZOCOR [Concomitant]

REACTIONS (1)
  - SUICIDAL IDEATION [None]
